FAERS Safety Report 18147779 (Version 1)
Quarter: 2020Q3

REPORT INFORMATION
  Report Type: Spontaneous
  Country: JP (occurrence: JP)
  Receive Date: 20200813
  Receipt Date: 20200813
  Transmission Date: 20201103
  Serious: Yes (Other)
  Sender: FDA-Public Use
  Company Number: JP-MALLINCKRODT-T202004014

PATIENT
  Weight: 1 kg

DRUGS (1)
  1. INOFLO [Suspect]
     Active Substance: NITRIC OXIDE
     Indication: NEWBORN PERSISTENT PULMONARY HYPERTENSION
     Dosage: UNK (INHALATION)
     Route: 055

REACTIONS (2)
  - Dry lung syndrome [Recovered/Resolved]
  - Product use issue [Unknown]
